FAERS Safety Report 14727441 (Version 1)
Quarter: 2018Q2

REPORT INFORMATION
  Report Type: Spontaneous
  Country: US (occurrence: US)
  Receive Date: 20180406
  Receipt Date: 20180406
  Transmission Date: 20180711
  Serious: No
  Sender: FDA-Public Use
  Company Number: US-BAYER-2018-058720

PATIENT
  Age: 88 Year

DRUGS (1)
  1. MIRALAX [Suspect]
     Active Substance: POLYETHYLENE GLYCOL 3350
     Dosage: 1/2 TEASPOON DOSE
     Route: 048

REACTIONS (3)
  - Anal incontinence [Unknown]
  - Underdose [Unknown]
  - Product use in unapproved indication [Unknown]
